FAERS Safety Report 5577264-4 (Version None)
Quarter: 2007Q4

REPORT INFORMATION
  Report Type: 
  Country: None (occurrence: None)
  Receive Date: 20071228
  Receipt Date: 20071220
  Transmission Date: 20080405
  Serious: Yes (Other)
  Sender: FDA-Public Use
  Company Number: US-PFIZER INC-2007090657

PATIENT
  Sex: Male
  Weight: 72 kg

DRUGS (7)
  1. CAMPTOSAR [Suspect]
     Indication: COLON CANCER
     Dosage: DAILY DOSE:340MG-FREQ:CYCLIC: EVERY 2 WEEKS
     Route: 042
  2. CAMPTOSAR [Suspect]
     Indication: COLORECTAL CANCER
  3. LEUCOVORIN [Concomitant]
     Dosage: DAILY DOSE:750MG-FREQ:CYCLIC: EVERY 2 WEEKS
  4. FLUOROURACIL [Concomitant]
     Dosage: TEXT:750 MG BOLUS-FREQ:CYCLIC: EVERY 2 WEEKS
  5. FLUOROURACIL [Concomitant]
     Dosage: TEXT:4510 MG CONTINUOUS FOR 46H FOR 2 WEEKS-FREQ:CYCLIC: EVERY 2 WEEKS
  6. DEXAMETHASONE TAB [Concomitant]
     Dosage: DAILY DOSE:10MG
     Route: 042
  7. KYTRIL [Concomitant]
     Dosage: DAILY DOSE:1MG
     Route: 042

REACTIONS (5)
  - ABDOMINAL PAIN [None]
  - DYSPEPSIA [None]
  - GASTROOESOPHAGEAL REFLUX DISEASE [None]
  - NAUSEA [None]
  - VOMITING [None]
